FAERS Safety Report 13695643 (Version 7)
Quarter: 2018Q2

REPORT INFORMATION
  Report Type: Report from Study
  Country: None (occurrence: JP)
  Receive Date: 20170627
  Receipt Date: 20180605
  Transmission Date: 20180711
  Serious: No
  Sender: FDA-Public Use
  Company Number: JP-ABBVIE-17P-087-2019298-00

PATIENT
  Age: 77 Year
  Sex: Male
  Weight: 70.8 kg

DRUGS (7)
  1. VIEKIRAX [Suspect]
     Active Substance: OMBITASVIR\PARITAPREVIR\RITONAVIR
     Indication: CHRONIC HEPATITIS C
     Route: 048
     Dates: start: 20170314, end: 20170619
  2. VIEKIRAX [Suspect]
     Active Substance: OMBITASVIR\PARITAPREVIR\RITONAVIR
     Indication: VIRAEMIA
     Route: 048
     Dates: start: 20170622, end: 20170705
  3. REBETOL [Suspect]
     Active Substance: RIBAVIRIN
     Indication: CHRONIC HEPATITIS C
     Route: 048
     Dates: start: 20170314, end: 20170425
  4. REBETOL [Suspect]
     Active Substance: RIBAVIRIN
     Indication: VIRAEMIA
     Route: 048
     Dates: start: 20170426, end: 20170508
  5. REBETOL [Suspect]
     Active Substance: RIBAVIRIN
     Route: 048
     Dates: start: 20170509, end: 20170605
  6. OLMESARTAN MEDOXOMIL. [Concomitant]
     Active Substance: OLMESARTAN MEDOXOMIL
     Indication: PRODUCT USED FOR UNKNOWN INDICATION
     Route: 048
  7. VONOPRAZAN FUMARATE [Concomitant]
     Active Substance: VONOPRAZAN FUMURATE
     Indication: PRODUCT USED FOR UNKNOWN INDICATION
     Route: 048

REACTIONS (5)
  - Gastrointestinal disorder [Recovered/Resolved]
  - Blood bilirubin increased [Recovered/Resolved]
  - Blood albumin decreased [Recovered/Resolved]
  - White blood cell count decreased [Recovered/Resolved]
  - Anaemia [Recovered/Resolved]

NARRATIVE: CASE EVENT DATE: 20170321
